FAERS Safety Report 8573687 (Version 3)
Quarter: 2015Q4

REPORT INFORMATION
  Report Type: Report from Study
  Country: US (occurrence: US)
  Receive Date: 20120522
  Receipt Date: 20151204
  Transmission Date: 20160305
  Serious: Yes (Death)
  Sender: FDA-Public Use
  Company Number: US-ROCHE-1070781

PATIENT
  Age: 32 Year
  Sex: Female

DRUGS (11)
  1. ABRAXANE [Suspect]
     Active Substance: PACLITAXEL
     Indication: BREAST CANCER
     Route: 042
     Dates: start: 20110916, end: 20120309
  2. AVASTIN [Suspect]
     Active Substance: BEVACIZUMAB
     Indication: BONE CANCER
     Route: 042
     Dates: start: 20110825
  3. DEXAMETHASONE SODIUM PHOSPHATE. [Concomitant]
     Active Substance: DEXAMETHASONE SODIUM PHOSPHATE
     Dosage: SHE RECEIVED SAME DOSE ON 30/SEP/2011,25/AUG/2011 AND 30/JUN/2011
     Route: 042
  4. ZOLEDRONIC ACID [Concomitant]
     Active Substance: ZOLEDRONIC ACID
     Route: 042
     Dates: start: 20110714
  5. NEUPOGEN [Concomitant]
     Active Substance: FILGRASTIM
     Indication: LEUKOPENIA
     Route: 042
  6. HEPARIN LOCK FLUSH [Concomitant]
     Active Substance: HEPARIN SODIUM
     Dosage: 10 UNITS
     Route: 065
  7. AVASTIN [Suspect]
     Active Substance: BEVACIZUMAB
     Indication: BREAST CANCER
     Dosage: SHE RECEIVED SAME DOSE ON 30/SEP/2011 AND 14/JUN/2011
     Route: 042
  8. ABRAXANE [Suspect]
     Active Substance: PACLITAXEL
     Route: 042
  9. AVASTIN [Suspect]
     Active Substance: BEVACIZUMAB
     Indication: BONE CANCER
     Route: 042
     Dates: start: 20110930
  10. ABRAXANE [Suspect]
     Active Substance: PACLITAXEL
     Dosage: SHE RECIEVED SAME DOSE ON 30/NOV/2011
     Route: 042
  11. KYTRIL [Concomitant]
     Active Substance: GRANISETRON HYDROCHLORIDE
     Dosage: SHE RECEIVED SAME DOSE ON 30/SEP/2011, 25/AUG/2011 AND 30/JUN/2011
     Route: 042

REACTIONS (8)
  - Breast cancer [Fatal]
  - Neutropenia [Unknown]
  - Decreased appetite [Unknown]
  - Fatigue [Unknown]
  - Weight decreased [Unknown]
  - Menopausal symptoms [Unknown]
  - Tumour pain [Unknown]
  - Bone pain [Unknown]

NARRATIVE: CASE EVENT DATE: 20120420
